FAERS Safety Report 9025330 (Version 1)
Quarter: 2012Q4

REPORT INFORMATION
  Report Type: 
  Country: FR (occurrence: FR)
  Receive Date: 20121211
  Receipt Date: 20121211
  Transmission Date: 20130627
  Serious: Yes (Life-Threatening, Hospitalization, Other)
  Sender: FDA-Public Use
  Company Number: PHHY2012FR112452

PATIENT
  Age: 41 Year
  Sex: Male

DRUGS (4)
  1. LEPONEX [Suspect]
     Indication: SCHIZOPHRENIA
     Dosage: 100 mg, 5 QD
     Route: 048
     Dates: end: 20121115
  2. ZYPREXA [Concomitant]
     Dosage: 10 mg, QD
     Route: 048
  3. DEPAKOTE [Concomitant]
     Dosage: 500 mg, QID
  4. TERCIAN [Concomitant]
     Dosage: 400 mg/ml, 50 drops PRN
     Route: 048

REACTIONS (9)
  - Cardiac tamponade [Recovering/Resolving]
  - Tachypnoea [Unknown]
  - Tachycardia [Unknown]
  - Hyperthermia [Unknown]
  - Pericardial effusion [Unknown]
  - Pleuropericarditis [Recovering/Resolving]
  - Pulmonary embolism [Unknown]
  - C-reactive protein increased [Not Recovered/Not Resolved]
  - White blood cell count increased [Unknown]
